FAERS Safety Report 6427888-7 (Version None)
Quarter: 2009Q4

REPORT INFORMATION
  Report Type: 
  Country: None (occurrence: None)
  Receive Date: 20091105
  Receipt Date: 20091029
  Transmission Date: 20100525
  Serious: Yes (Other)
  Sender: FDA-Public Use
  Company Number: US-ASTRAZENECA-2009UW20446

PATIENT
  Sex: Female
  Weight: 72.6 kg

DRUGS (4)
  1. SEROQUEL [Suspect]
     Indication: DEPRESSION
     Route: 048
  2. ABILIFY [Concomitant]
  3. TRAZODONE HCL [Concomitant]
  4. CYMBALTA [Concomitant]

REACTIONS (6)
  - BACK DISORDER [None]
  - INTERVERTEBRAL DISC PROTRUSION [None]
  - KETOACIDOSIS [None]
  - OBESITY [None]
  - PANCREATITIS [None]
  - TYPE 2 DIABETES MELLITUS [None]
